FAERS Safety Report 9420966 (Version 1)
Quarter: 2013Q3

REPORT INFORMATION
  Report Type: Spontaneous
  Country: PL (occurrence: PL)
  Receive Date: 20130725
  Receipt Date: 20130725
  Transmission Date: 20140515
  Serious: Yes (Other)
  Sender: FDA-Public Use
  Company Number: PL-ABBOTT-13P-129-1123298-00

PATIENT
  Age: 32 Year
  Sex: Female
  Weight: 55 kg

DRUGS (2)
  1. HUMIRA [Suspect]
     Indication: ARTHRITIS ENTEROPATHIC
     Route: 058
     Dates: start: 20130101, end: 20130617
  2. HUMIRA [Suspect]
     Dates: start: 201103, end: 201208

REACTIONS (1)
  - Iritis [Unknown]
